FAERS Safety Report 7795264-0 (Version None)
Quarter: 2011Q4

REPORT INFORMATION
  Report Type: 
  Country: None (occurrence: None)
  Receive Date: 20111004
  Receipt Date: 20110921
  Transmission Date: 20120403
  Serious: Yes (Hospitalization)
  Sender: FDA-Public Use
  Company Number: US-ELI_LILLY_AND_COMPANY-US201109007781

PATIENT
  Sex: Male

DRUGS (3)
  1. HUMALOG [Suspect]
     Dosage: 15 U, TID
     Route: 065
     Dates: start: 20010101
  2. HUMALOG [Suspect]
     Indication: TYPE 2 DIABETES MELLITUS
     Dosage: 15 U, TID
     Route: 065
     Dates: start: 20010101
  3. LANTUS [Concomitant]
     Dosage: 50 U, EACH EVENING

REACTIONS (3)
  - LOSS OF CONSCIOUSNESS [None]
  - BLOOD GLUCOSE INCREASED [None]
  - DRUG DOSE OMISSION [None]
